FAERS Safety Report 5059796-0 (Version None)
Quarter: 2006Q3

REPORT INFORMATION
  Report Type: 
  Country: None (occurrence: None)
  Receive Date: 20060724
  Receipt Date: 20060522
  Transmission Date: 20061208
  Serious: Yes (Life-Threatening)
  Sender: FDA-Public Use
  Company Number: FR-GLAXOSMITHKLINE-B0424879A

PATIENT
  Age: 76 Year
  Sex: Male
  Weight: 86 kg

DRUGS (4)
  1. ADARTREL [Suspect]
     Indication: RESTLESS LEGS SYNDROME
     Route: 048
     Dates: start: 20051201
  2. HEXAQUINE [Suspect]
     Dosage: 2TAB PER DAY
     Route: 048
  3. DIANTALVIC [Suspect]
     Dosage: 2CAP PER DAY
     Route: 048
  4. ADANCOR [Concomitant]
     Indication: ARTERITIS CORONARY
     Dosage: 10MG PER DAY
     Route: 048
     Dates: start: 20030101

REACTIONS (6)
  - DEPRESSED LEVEL OF CONSCIOUSNESS [None]
  - DISTURBANCE IN ATTENTION [None]
  - INSOMNIA [None]
  - LOSS OF CONSCIOUSNESS [None]
  - RESTLESS LEGS SYNDROME [None]
  - SOMNOLENCE [None]
